FAERS Safety Report 6696551-X (Version None)
Quarter: 2010Q2

REPORT INFORMATION
  Report Type: 
  Country: None (occurrence: None)
  Receive Date: 20100426
  Receipt Date: 20100419
  Transmission Date: 20101027
  Serious: Yes (Other)
  Sender: FDA-Public Use
  Company Number: US-RB-003639-10

PATIENT
  Age: 42 Year
  Sex: Female

DRUGS (1)
  1. SUBOXONE [Suspect]
     Indication: DRUG USE FOR UNKNOWN INDICATION
     Dosage: DOSING DETAILS UNKNOWN
     Route: 065

REACTIONS (7)
  - ARTHRALGIA [None]
  - ASTHMA [None]
  - CHEST PAIN [None]
  - NASOPHARYNGITIS [None]
  - PAIN [None]
  - POOR QUALITY SLEEP [None]
  - SUICIDAL IDEATION [None]
